FAERS Safety Report 20329293 (Version 1)
Quarter: 2022Q1

REPORT INFORMATION
  Report Type: Spontaneous
  Country: JP (occurrence: JP)
  Receive Date: 20220112
  Receipt Date: 20220112
  Transmission Date: 20220423
  Serious: Yes (Hospitalization)
  Sender: FDA-Public Use
  Company Number: JP-NOVARTISPH-NVSC2021JP214867

PATIENT
  Age: 23 Year
  Sex: Male
  Weight: 52.7 kg

DRUGS (1)
  1. TASIGNA [Suspect]
     Active Substance: NILOTINIB
     Indication: Chronic myeloid leukaemia
     Dosage: 350 MG, BID
     Route: 048
     Dates: start: 2019, end: 2020

REACTIONS (3)
  - Pleurisy [Recovering/Resolving]
  - Pleural effusion [Recovering/Resolving]
  - Cross sensitivity reaction [Recovering/Resolving]

NARRATIVE: CASE EVENT DATE: 20200101
